FAERS Safety Report 23891904 (Version 1)
Quarter: 2024Q2

REPORT INFORMATION
  Report Type: Spontaneous
  Country: US (occurrence: US)
  Receive Date: 20240524
  Receipt Date: 20240524
  Transmission Date: 20240716
  Serious: No
  Sender: FDA-Public Use
  Company Number: US-TAKEDA-2024TUS051530

PATIENT
  Sex: Female
  Weight: 57 kg

DRUGS (1)
  1. HYQVIA [Suspect]
     Active Substance: HUMAN IMMUNOGLOBULIN G\HYALURONIDASE (HUMAN RECOMBINANT)
     Indication: Immune system disorder
     Dosage: 250 MILLIGRAM, MONTHLY
     Route: 058

REACTIONS (3)
  - Incorrect dose administered [Unknown]
  - Device malfunction [Unknown]
  - No adverse event [Unknown]
